FAERS Safety Report 9137594 (Version 1)
Quarter: 2013Q1

REPORT INFORMATION
  Report Type: Spontaneous
  Country: AU (occurrence: AU)
  Receive Date: 20130304
  Receipt Date: 20130304
  Transmission Date: 20140127
  Serious: Yes (Death, Other)
  Sender: FDA-Public Use
  Company Number: AU-CELGENEUS-008-20785-13024143

PATIENT
  Age: 65 Year
  Sex: Male

DRUGS (8)
  1. THALOMID [Suspect]
     Indication: PLASMA CELL MYELOMA
     Route: 048
  2. DEXAMETHASONE [Suspect]
     Indication: PLASMA CELL MYELOMA
     Route: 065
  3. CISPLATIN [Suspect]
     Indication: PLASMA CELL MYELOMA
     Route: 065
  4. ADRIAMYCIN [Suspect]
     Indication: PLASMA CELL MYELOMA
     Route: 065
  5. CYCLOPHOSPHAMIDE [Suspect]
     Indication: PLASMA CELL MYELOMA
     Route: 065
  6. ETOPOSIDE [Suspect]
     Indication: PLASMA CELL MYELOMA
     Route: 065
  7. IV FLUIDS [Concomitant]
     Indication: PROPHYLAXIS
     Route: 041
  8. FRUSEMIDE [Concomitant]
     Indication: PRODUCT USED FOR UNKNOWN INDICATION
     Route: 065

REACTIONS (2)
  - Posterior reversible encephalopathy syndrome [Recovered/Resolved]
  - Sepsis [Fatal]
